APPROVED DRUG PRODUCT: ALBUTEROL SULFATE
Active Ingredient: ALBUTEROL SULFATE
Strength: EQ 0.042% BASE
Dosage Form/Route: SOLUTION;INHALATION
Application: A078623 | Product #002
Applicant: APOTEX INC
Approved: Apr 5, 2010 | RLD: No | RS: No | Type: DISCN